FAERS Safety Report 5114082-5 (Version None)
Quarter: 2006Q3

REPORT INFORMATION
  Report Type: 
  Country: None (occurrence: None)
  Receive Date: 20060925
  Receipt Date: 20060921
  Transmission Date: 20061208
  Serious: Yes (Hospitalization)
  Sender: FDA-Public Use
  Company Number: US-GLAXOSMITHKLINE-A0620985A

PATIENT
  Age: 61 Year
  Sex: Male

DRUGS (6)
  1. AVANDIA [Suspect]
     Dosage: 8MG PER DAY
     Route: 048
     Dates: start: 20040101
  2. PROZAC [Concomitant]
  3. AMARYL [Concomitant]
  4. GLUCOPHAGE [Concomitant]
  5. DIAZEPAM [Concomitant]
  6. LANTUS [Concomitant]

REACTIONS (3)
  - CARDIAC FAILURE CONGESTIVE [None]
  - OEDEMA [None]
  - PNEUMONIA [None]
